FAERS Safety Report 15064786 (Version 1)
Quarter: 2018Q2

REPORT INFORMATION
  Report Type: Other
  Country: US (occurrence: US)
  Receive Date: 20180626
  Receipt Date: 20180626
  Transmission Date: 20180711
  Serious: Yes (Life-Threatening, Hospitalization, Other)
  Sender: FDA-Public Use
  Company Number: US-DENTSPLY-2018SCDP000245

PATIENT
  Age: 33 Year
  Sex: Female
  Weight: 65 kg

DRUGS (3)
  1. PROPOFOL. [Concomitant]
     Active Substance: PROPOFOL
     Indication: PRODUCT USED FOR UNKNOWN INDICATION
     Dosage: UNK
  2. LIDOCAINE HYDROCHLORIDE AND EPINEPHRINE BITARTRATE [Suspect]
     Active Substance: EPINEPHRINE BITARTRATE\LIDOCAINE HYDROCHLORIDE
     Indication: ANAESTHESIA
     Dosage: 60ML LIDOCAINE
     Route: 058
  3. SUXAMETHONIUM [Concomitant]
     Active Substance: SUCCINYLCHOLINE
     Indication: PRODUCT USED FOR UNKNOWN INDICATION
     Dosage: UNK

REACTIONS (3)
  - Toxicity to various agents [Recovered/Resolved]
  - Cardiac arrest [Recovered/Resolved]
  - Overdose [Recovered/Resolved]
